FAERS Safety Report 6084602-5 (Version None)
Quarter: 2009Q1

REPORT INFORMATION
  Report Type: 
  Country: None (occurrence: None)
  Receive Date: 20090219
  Receipt Date: 20090219
  Transmission Date: 20090719
  Serious: Yes (Death)
  Sender: FDA-Public Use
  Company Number: US-ROXANE LABORATORIES, INC.-2009-RO-00174RO

PATIENT
  Age: 35 Year
  Sex: Female

DRUGS (4)
  1. METHADONE HCL [Suspect]
     Route: 065
  2. OXYCONTIN [Concomitant]
     Indication: PAIN
  3. SOMA [Concomitant]
     Indication: PAIN
  4. NORCO [Concomitant]
     Indication: PAIN

REACTIONS (1)
  - DRUG TOXICITY [None]
